APPROVED DRUG PRODUCT: METOZOLV ODT
Active Ingredient: METOCLOPRAMIDE HYDROCHLORIDE
Strength: EQ 10MG BASE **Federal Register determination that product was not discontinued or withdrawn for safety or effectiveness reasons**
Dosage Form/Route: TABLET, ORALLY DISINTEGRATING;ORAL
Application: N022246 | Product #002
Applicant: SALIX PHARMACEUTICALS INC
Approved: Sep 4, 2009 | RLD: Yes | RS: No | Type: DISCN